FAERS Safety Report 15547548 (Version 2)
Quarter: 2018Q4

REPORT INFORMATION
  Report Type: Spontaneous
  Country: JP (occurrence: JP)
  Receive Date: 20181024
  Receipt Date: 20181108
  Transmission Date: 20190205
  Serious: Yes (Other)
  Sender: FDA-Public Use
  Company Number: JP-JNJFOC-20181027305

PATIENT
  Age: 63 Year
  Sex: Male

DRUGS (11)
  1. DEXAMETHASONE ACETATE [Suspect]
     Active Substance: DEXAMETHASONE ACETATE
     Indication: PLASMA CELL MYELOMA
     Dosage: UNKNOWN, DAY1,8,15,22, FIRST COURSE
     Route: 042
  2. DEXAMETHASONE ACETATE [Suspect]
     Active Substance: DEXAMETHASONE ACETATE
     Indication: PLASMA CELL MYELOMA
     Dosage: UNKNOWN, DAY1, 15, SECOND COURSE
     Route: 042
  3. DEXAMETHASONE ACETATE [Suspect]
     Active Substance: DEXAMETHASONE ACETATE
     Indication: PLASMA CELL MYELOMA
     Dosage: UNKNOWN, DAY1, THIRD COURSE
     Route: 042
  4. DARZALEX [Suspect]
     Active Substance: DARATUMUMAB
     Indication: PLASMA CELL MYELOMA
     Dosage: DAY1,8,15,22; 1 2 CYCLE
     Route: 041
  5. DEXAMETHASONE. [Suspect]
     Active Substance: DEXAMETHASONE
     Indication: PLASMA CELL MYELOMA
     Dosage: DAY 2, 16, 3 CYCLE
     Route: 048
  6. DEXAMETHASONE. [Suspect]
     Active Substance: DEXAMETHASONE
     Indication: PLASMA CELL MYELOMA
     Dosage: DAY2, 9, 16, 23  1  2CYCLE
     Route: 048
  7. LENALIDOMIDE [Suspect]
     Active Substance: LENALIDOMIDE
     Indication: PLASMA CELL MYELOMA
     Dosage: UNKNOWN, DAY1 TO DAY21, THIRD COURSE
     Route: 048
  8. DEXAMETHASONE ACETATE [Suspect]
     Active Substance: DEXAMETHASONE ACETATE
     Indication: PLASMA CELL MYELOMA
     Dosage: UNKNOWN, DAY1, 15, 3CYCLE
     Route: 042
  9. LENALIDOMIDE [Suspect]
     Active Substance: LENALIDOMIDE
     Indication: PLASMA CELL MYELOMA
     Dosage: UNKNOWN, DAY1 TO DAY21, SECOND COURSE
     Route: 048
  10. DARZALEX [Suspect]
     Active Substance: DARATUMUMAB
     Indication: PLASMA CELL MYELOMA
     Dosage: DAY1,15,3 CYCLE
     Route: 041
  11. LENALIDOMIDE [Suspect]
     Active Substance: LENALIDOMIDE
     Indication: PLASMA CELL MYELOMA
     Dosage: 5-15MG, DAY1 DAY21
     Route: 048

REACTIONS (8)
  - Neuropathy peripheral [Unknown]
  - Malaise [Unknown]
  - Monoclonal immunoglobulin present [Unknown]
  - Neutrophil count decreased [Unknown]
  - Condition aggravated [Unknown]
  - Platelet count decreased [Unknown]
  - Upper respiratory tract infection [Unknown]
  - Decreased appetite [Unknown]
